FAERS Safety Report 20149484 (Version 1)
Quarter: 2021Q4

REPORT INFORMATION
  Report Type: Spontaneous
  Country: US (occurrence: US)
  Receive Date: 20211205
  Receipt Date: 20211205
  Transmission Date: 20220303
  Serious: No
  Sender: FDA-Public Use
  Company Number: US-Blueprint Medicines Corporation-SP-US-2021-002351

PATIENT
  Age: 87 Year
  Sex: Female

DRUGS (2)
  1. AVAPRITINIB [Suspect]
     Active Substance: AVAPRITINIB
     Indication: Systemic mastocytosis
     Route: 048
     Dates: start: 20211103
  2. AVAPRITINIB [Suspect]
     Active Substance: AVAPRITINIB
     Indication: Myelodysplastic syndrome

REACTIONS (8)
  - Back disorder [Unknown]
  - Nausea [Recovering/Resolving]
  - Decreased appetite [Recovering/Resolving]
  - Rash pruritic [Recovered/Resolved]
  - Joint swelling [Unknown]
  - Swelling face [Unknown]
  - Periorbital swelling [Unknown]
  - Gastrooesophageal reflux disease [Unknown]
